FAERS Safety Report 7551643-8 (Version None)
Quarter: 2011Q2

REPORT INFORMATION
  Report Type: 
  Country: None (occurrence: None)
  Receive Date: 20110609
  Receipt Date: 20110524
  Transmission Date: 20111010
  Serious: Yes (Hospitalization)
  Sender: FDA-Public Use
  Company Number: 2011MA006390

PATIENT
  Age: 68 Year
  Sex: Female

DRUGS (4)
  1. ETHAMBUTOL [Concomitant]
  2. PYRAZINAMIDE [Concomitant]
  3. RIFAMPIN [Suspect]
     Indication: PULMONARY TUBERCULOSIS
     Dosage: 450 MG, QD;
  4. ISONIAZID [Concomitant]

REACTIONS (7)
  - THROMBOCYTOPENIA [None]
  - PETECHIAE [None]
  - ANTINUCLEAR ANTIBODY POSITIVE [None]
  - ANTIPHOSPHOLIPID ANTIBODIES POSITIVE [None]
  - DRUG SPECIFIC ANTIBODY PRESENT [None]
  - HAEMOGLOBIN DECREASED [None]
  - SUBDURAL HAEMORRHAGE [None]
